FAERS Safety Report 5823542-0 (Version None)
Quarter: 2008Q3

REPORT INFORMATION
  Report Type: 
  Country: None (occurrence: None)
  Receive Date: 20080725
  Receipt Date: 20080718
  Transmission Date: 20090109
  Serious: Yes (Other)
  Sender: FDA-Public Use
  Company Number: HQWYE324622JUL04

PATIENT
  Sex: Female

DRUGS (7)
  1. PREMPRO [Suspect]
     Indication: HORMONE REPLACEMENT THERAPY
  2. PROVERA [Suspect]
  3. CYCRIN [Suspect]
  4. ESTROGEN NOS [Suspect]
  5. PROGESTERONE [Suspect]
  6. CONJUGATED ESTROGENS [Suspect]
  7. AMEN [Suspect]

REACTIONS (4)
  - ACUTE RESPIRATORY FAILURE [None]
  - BREAST CANCER [None]
  - CHRONIC OBSTRUCTIVE PULMONARY DISEASE [None]
  - CHRONIC RESPIRATORY FAILURE [None]
